FAERS Safety Report 11116263 (Version 1)
Quarter: 2015Q2

REPORT INFORMATION
  Report Type: Spontaneous
  Country: TR (occurrence: TR)
  Receive Date: 20150515
  Receipt Date: 20150515
  Transmission Date: 20150821
  Serious: Yes (Hospitalization, Other)
  Sender: FDA-Public Use
  Company Number: PHHY2015TR055134

PATIENT
  Age: 60 Year
  Sex: Male

DRUGS (1)
  1. ACETYLSALICYLIC ACID [Suspect]
     Active Substance: ASPIRIN
     Indication: ARTHRALGIA

REACTIONS (3)
  - Incorrect route of drug administration [Unknown]
  - Skin burning sensation [Recovered/Resolved]
  - Drug administered at inappropriate site [Unknown]
